FAERS Safety Report 5550902-8 (Version None)
Quarter: 2007Q4

REPORT INFORMATION
  Report Type: 
  Country: None (occurrence: None)
  Receive Date: 20071210
  Receipt Date: 20071122
  Transmission Date: 20080405
  Serious: Yes (Other)
  Sender: FDA-Public Use
  Company Number: S07-FRA-05253-01

PATIENT
  Age: 67 Year
  Sex: Male

DRUGS (4)
  1. ESCITALOPRAM [Suspect]
     Indication: DEPRESSION
     Dosage: 10 MG QD PO
     Route: 048
     Dates: start: 20061215, end: 20070209
  2. METOPROLOL TARTRATE [Concomitant]
  3. ASPEGIC 1000 [Concomitant]
  4. PRAVASTATIN [Concomitant]

REACTIONS (10)
  - ANXIETY [None]
  - COGNITIVE DISORDER [None]
  - CONFUSIONAL STATE [None]
  - DEMENTIA [None]
  - DISORIENTATION [None]
  - DISTURBANCE IN ATTENTION [None]
  - HALLUCINATION, AUDITORY [None]
  - MEMORY IMPAIRMENT [None]
  - PSYCHOMOTOR RETARDATION [None]
  - SLEEP DISORDER [None]
